FAERS Safety Report 12935370 (Version 1)
Quarter: 2016Q4

REPORT INFORMATION
  Report Type: Spontaneous
  Country: ES (occurrence: ES)
  Receive Date: 20161114
  Receipt Date: 20161114
  Transmission Date: 20170207
  Serious: No
  Sender: FDA-Public Use
  Company Number: ES-JAZZ-2016-ES-019952

PATIENT
  Sex: Female

DRUGS (1)
  1. XYREM [Suspect]
     Active Substance: SODIUM OXYBATE
     Indication: NARCOLEPSY
     Dosage: UNKNOWN DOSE
     Route: 048

REACTIONS (5)
  - Nervousness [Unknown]
  - Respiratory disorder [Unknown]
  - Nausea [Unknown]
  - Hyperhidrosis [Unknown]
  - Dizziness [Unknown]
